FAERS Safety Report 8914935 (Version 2)
Quarter: 2012Q4

REPORT INFORMATION
  Report Type: 
  Country: US (occurrence: US)
  Receive Date: 20121116
  Receipt Date: 20121130
  Transmission Date: 20130627
  Serious: Yes (Other)
  Sender: FDA-Public Use
  Company Number: US-BRISTOL-MYERS SQUIBB COMPANY-16839037

PATIENT
  Age: 75 Year
  Sex: Female

DRUGS (10)
  1. ORENCIA [Suspect]
     Indication: RHEUMATOID ARTHRITIS
     Dosage: Last inf:01AUG2012.
     Route: 042
     Dates: start: 20120507, end: 20120829
  2. METHOTREXATE [Concomitant]
  3. GABAPENTIN [Concomitant]
  4. ATORVASTATIN [Concomitant]
  5. LISINOPRIL [Concomitant]
  6. JANUVIA [Concomitant]
  7. ZOLOFT [Concomitant]
  8. PROPANOL [Concomitant]
  9. LEVOXYL [Concomitant]
  10. ASPIRIN [Concomitant]

REACTIONS (4)
  - Oral disorder [Unknown]
  - Drug ineffective [Unknown]
  - Fatigue [Unknown]
  - Infusion related reaction [Unknown]
